FAERS Safety Report 7689524-1 (Version None)
Quarter: 2011Q3

REPORT INFORMATION
  Report Type: 
  Country: None (occurrence: None)
  Receive Date: 20110817
  Receipt Date: 20110804
  Transmission Date: 20111222
  Serious: No
  Sender: FDA-Public Use
  Company Number: US-TYCO HEALTHCARE/MALLINCKRODT-T201101421

PATIENT
  Sex: Female
  Weight: 74.83 kg

DRUGS (18)
  1. METHOCARBAMOL [Concomitant]
     Indication: MUSCLE RELAXANT THERAPY
     Dosage: 750 MG, TID
  2. SPIRONOLACTONE W/ HYDROCHLOROTHIAZIDE [Concomitant]
     Dosage: 25/25 MG TAB QD
  3. CARVEDILOL [Concomitant]
     Dosage: 25 MG Q12 HR
  4. VITAMIN D [Concomitant]
     Dosage: 1.25 - 50,000 UNITS Q WEEK
  5. LASIX [Concomitant]
     Dosage: 20 MG QD
  6. LORAZEPAM [Concomitant]
     Indication: DEPRESSION
     Dosage: 1 MG QHS
  7. AMLODIPINE [Concomitant]
     Indication: HYPERTENSION
     Dosage: 5 MG QD
  8. BENADRYL [Concomitant]
     Indication: INSOMNIA
     Dosage: 50 MG QD
     Route: 048
  9. TYLENOL PM                         /01088101/ [Concomitant]
     Dosage: AS NEEDED
     Route: 048
  10. FERROUS SULFATE TAB [Concomitant]
     Dosage: 750 MG QD
  11. TIAZADINE [Concomitant]
     Indication: MUSCLE RELAXANT THERAPY
     Dosage: 4 MG, UNK
     Route: 048
  12. VOLTAREN [Concomitant]
     Dosage: UNK
  13. FENTANYL-100 [Suspect]
     Indication: MUSCULOSKELETAL PAIN
     Dosage: 50 MCG/HR Q72H
     Route: 062
     Dates: start: 20101201
  14. FENTANYL-100 [Suspect]
     Indication: NECK PAIN
  15. DILAUDID [Concomitant]
     Indication: BREAKTHROUGH PAIN
     Dosage: 4 MG, Q6 HR AS NEEDED
     Route: 048
  16. CELEXA [Concomitant]
     Indication: DEPRESSION
     Dosage: 20 MG, QD
  17. HYDROXYZ PAM [Concomitant]
     Indication: DEPRESSION
     Dosage: 25 MG, BID
  18. ALBUTEROL [Concomitant]
     Indication: ASTHMA
     Dosage: 2 PUFFS AS NEEDED

REACTIONS (5)
  - APPLICATION SITE RASH [None]
  - DRUG EFFECT DECREASED [None]
  - APPLICATION SITE PRURITUS [None]
  - APPLICATION SITE VESICLES [None]
  - APPLICATION SITE PAIN [None]
